FAERS Safety Report 15222296 (Version 4)
Quarter: 2019Q2

REPORT INFORMATION
  Report Type: Spontaneous
  Country: CA (occurrence: CA)
  Receive Date: 20180731
  Receipt Date: 20190613
  Transmission Date: 20190711
  Serious: Yes (Other)
  Sender: FDA-Public Use
  Company Number: CA-CELLTRION INC.-2018CA020605

PATIENT

DRUGS (18)
  1. BOTOX [Concomitant]
     Active Substance: ONABOTULINUMTOXINA
     Dosage: 100 U VIAL
  2. DILANTIN [Concomitant]
     Active Substance: PHENYTOIN
     Dosage: 100 MG, 1X/DAY
     Route: 048
  3. APO LORAZEPAM [Concomitant]
     Active Substance: LORAZEPAM
     Dosage: 1 MG, 1X/DAY (BEDTIME IF NEEDED)
     Route: 048
  4. DULOXETINE. [Concomitant]
     Active Substance: DULOXETINE
     Dosage: 60 MG,1X/DAY
     Route: 048
  5. TEVA CLINDAMYCIN [Concomitant]
     Active Substance: CLINDAMYCIN
     Dosage: 300 MG, 4X/DAY FOR 10 DAYS UNTIL FINISHED
     Route: 048
     Dates: start: 20180119
  6. FOLIC ACID. [Concomitant]
     Active Substance: FOLIC ACID
     Dosage: 1 MG, 1X/DAY
     Route: 048
  7. TOPIRAMATE. [Concomitant]
     Active Substance: TOPIRAMATE
     Dosage: 25 MG, DAILY (3 TABLETS)
     Route: 048
  8. FUCIDIN [Concomitant]
     Active Substance: FUSIDATE SODIUM
     Dosage: APPLY TO AFFECT AREAS OD FOR NO MORE THAN 7 DAYS IN COMBINATION WITH HYDERM CREAM
  9. HYDERM [Concomitant]
     Dosage: APPLY TO AFFECT AREAS OD FOR NO MORE THAN 7 DAYS
  10. SAXENDA [Concomitant]
     Active Substance: LIRAGLUTIDE
     Dosage: 0.6 MG, ONCE A DAY FOR ONE WEEK THEN INCREASED BY 0.6 MG EVERY WEEK UNTIL REACHING DOSE OF 3 MG
     Route: 058
  11. INFLECTRA [Suspect]
     Active Substance: INFLIXIMAB-DYYB
     Dosage: 500 MG (6.10MG/KG), EVERY 0,2,6 WEEKS, THEN EVERY 8 WEEKS
     Route: 042
     Dates: start: 20180614, end: 20180614
  12. INFLECTRA [Suspect]
     Active Substance: INFLIXIMAB-DYYB
     Dosage: 500 MG, EVERY 6 WEEKS, THEN EVERY 8 WEEKS
     Route: 042
     Dates: start: 20181025
  13. INFLECTRA [Suspect]
     Active Substance: INFLIXIMAB-DYYB
     Indication: PSORIATIC ARTHROPATHY
     Dosage: 500 MG, EVERY 0,2,6 WEEKS, THEN EVERY 8 WEEKS
     Route: 042
     Dates: start: 20180529
  14. INFLECTRA [Suspect]
     Active Substance: INFLIXIMAB-DYYB
     Dosage: 500 MG, EVERY 6 WEEKS, THEN EVERY 8 WEEKS
     Route: 042
     Dates: start: 20190408
  15. INFLECTRA [Suspect]
     Active Substance: INFLIXIMAB-DYYB
     Dosage: 500 MG, EVERY 6 WEEKS, THEN EVERY 8 WEEKS
     Route: 042
     Dates: start: 20190603
  16. INFLECTRA [Suspect]
     Active Substance: INFLIXIMAB-DYYB
     Dosage: 500 MG, EVERY 6 WEEKS, THEN EVERY 8 WEEKS
     Route: 042
     Dates: start: 20180814
  17. APO AMITRIPTYLINE [Concomitant]
     Active Substance: AMITRIPTYLINE
     Dosage: 50 MG, 1X/DAY (HS)
     Route: 048
  18. METHOTREXATE (METHOTREXATE SODIUM) [Concomitant]
     Active Substance: METHOTREXATE SODIUM
     Dosage: 25 MG, WEEKLY

REACTIONS (5)
  - Nephrolithiasis [Unknown]
  - Off label use [Unknown]
  - Urinary tract infection [Unknown]
  - Off label use [Unknown]
  - Swelling face [Unknown]

NARRATIVE: CASE EVENT DATE: 2018
